FAERS Safety Report 10932893 (Version 1)
Quarter: 2015Q1

REPORT INFORMATION
  Report Type: Spontaneous
  Country: US (occurrence: US)
  Receive Date: 20150320
  Receipt Date: 20150320
  Transmission Date: 20150721
  Serious: Yes (Death)
  Sender: FDA-Public Use
  Company Number: US-TEVA-548777USA

PATIENT
  Age: 31 Year
  Sex: Male
  Weight: 79 kg

DRUGS (5)
  1. ASENAPINE [Suspect]
     Active Substance: ASENAPINE
     Route: 065
  2. ALPRAZOLAM. [Suspect]
     Active Substance: ALPRAZOLAM
     Route: 065
  3. CLONAZEPAM. [Suspect]
     Active Substance: CLONAZEPAM
     Route: 065
  4. AMFETAMINE [Suspect]
     Active Substance: AMPHETAMINE
     Route: 065
  5. ACTIQ [Suspect]
     Active Substance: FENTANYL CITRATE
     Route: 065

REACTIONS (2)
  - Toxicity to various agents [Fatal]
  - Accidental overdose [Fatal]
